FAERS Safety Report 16509475 (Version 3)
Quarter: 2019Q3

REPORT INFORMATION
  Report Type: Spontaneous
  Country: JP (occurrence: JP)
  Receive Date: 20190702
  Receipt Date: 20190730
  Transmission Date: 20191004
  Serious: Yes (Death, Other)
  Sender: FDA-Public Use
  Company Number: JP-VIIV HEALTHCARE LIMITED-JP2019JPN117934

PATIENT
  Age: 75 Year
  Sex: Male

DRUGS (7)
  1. OLMESARTAN OD [Concomitant]
     Active Substance: OLMESARTAN MEDOXOMIL
     Indication: HYPERTENSION
     Dosage: 40 MG, QD
     Dates: start: 2014
  2. JANUVIA [Concomitant]
     Active Substance: SITAGLIPTIN PHOSPHATE
     Indication: DIABETES MELLITUS
     Dosage: 25 MG, QD
     Dates: start: 2014
  3. AVOLVE [Concomitant]
     Active Substance: DUTASTERIDE
     Indication: BENIGN PROSTATIC HYPERPLASIA
     Dosage: 0.5 MG, QD
     Dates: start: 2014
  4. TIVICAY [Suspect]
     Active Substance: DOLUTEGRAVIR SODIUM
     Indication: HIV INFECTION
     Dosage: 50 MG, QD
     Route: 048
     Dates: start: 20141208
  5. DESCOVY [Concomitant]
     Active Substance: EMTRICITABINE\TENOFOVIR ALAFENAMIDE FUMARATE
     Indication: HIV INFECTION
     Dosage: 1 DF, QD
     Dates: start: 20170821
  6. MAGMITT [Concomitant]
     Active Substance: MAGNESIUM OXIDE
     Indication: CONSTIPATION
     Dosage: 330 MG, BID
     Dates: start: 20190110
  7. URIEF [Concomitant]
     Active Substance: SILODOSIN
     Indication: BENIGN PROSTATIC HYPERPLASIA
     Dosage: 4 MG, QD
     Dates: start: 2014

REACTIONS (5)
  - Vertigo [Unknown]
  - Depressed mood [Unknown]
  - Completed suicide [Fatal]
  - Tinnitus [Unknown]
  - Malaise [Unknown]

NARRATIVE: CASE EVENT DATE: 2019
